FAERS Safety Report 11904573 (Version 1)
Quarter: 2016Q1

REPORT INFORMATION
  Report Type: Spontaneous
  Country: US (occurrence: US)
  Receive Date: 20160108
  Receipt Date: 20160108
  Transmission Date: 20160526
  Serious: Yes (Life-Threatening, Other)
  Sender: FDA-Public Use
  Company Number: US-ROCHE-1648793

PATIENT
  Sex: Female

DRUGS (4)
  1. LISINOPRIL. [Concomitant]
     Active Substance: LISINOPRIL
     Indication: HYPERTENSION
     Route: 065
  2. RITUXAN [Suspect]
     Active Substance: RITUXIMAB
     Indication: CONGENITAL SYPHILITIC OSTEOCHONDRITIS
     Route: 042
  3. METHYLPREDNISOLONE. [Concomitant]
     Active Substance: METHYLPREDNISOLONE
     Indication: CONGENITAL SYPHILITIC OSTEOCHONDRITIS
     Dosage: THEY STARTED ME ON 8 BUT I^M ON 4 NOW.
     Route: 065
     Dates: start: 20150930
  4. METHOTREXATE [Concomitant]
     Active Substance: METHOTREXATE
     Indication: CONGENITAL SYPHILITIC OSTEOCHONDRITIS
     Dosage: 6.6?I GET AN INJECTION ONCE A WEEK.
     Route: 065

REACTIONS (3)
  - Urticaria [Unknown]
  - Rash [Unknown]
  - Pharyngeal oedema [Recovered/Resolved]
